FAERS Safety Report 17952096 (Version 1)
Quarter: 2020Q2

REPORT INFORMATION
  Report Type: Report from Study
  Country: JP (occurrence: JP)
  Receive Date: 20200626
  Receipt Date: 20200626
  Transmission Date: 20200714
  Serious: Yes (Life-Threatening)
  Sender: FDA-Public Use
  Company Number: JP-EISAI MEDICAL RESEARCH-EC-2020-076534

PATIENT
  Age: 75 Year
  Sex: Male
  Weight: 47 kg

DRUGS (19)
  1. IA-CALL [Suspect]
     Active Substance: CISPLATIN
     Indication: PROPHYLAXIS
     Dosage: PER 4-6 WEEKS
     Route: 013
     Dates: start: 20200116, end: 20200521
  2. CAMOSTAT MESILATE [Concomitant]
     Active Substance: CAMOSTAT MESYLATE
  3. FORXIGA [Concomitant]
     Active Substance: DAPAGLIFLOZIN
  4. EVAMYL [Concomitant]
     Active Substance: LORMETAZEPAM
  5. L-CARBOCISTEINE [Concomitant]
     Active Substance: CARBOCYSTEINE
  6. MUCOSOLVAN [Concomitant]
     Active Substance: AMBROXOL HYDROCHLORIDE
  7. ACETYLOL [Concomitant]
  8. EQUA [Concomitant]
     Active Substance: VILDAGLIPTIN
  9. THYRADIN-S [Concomitant]
     Active Substance: LEVOTHYROXINE
  10. LEVOFLOXACIN HEMIHYDRATE [Concomitant]
     Active Substance: LEVOFLOXACIN
  11. LENVIMA [Suspect]
     Active Substance: LENVATINIB
     Indication: HEPATOCELLULAR CARCINOMA
     Route: 048
     Dates: start: 20200116, end: 20200606
  12. METFORMIN HYDROCHLORIDE. [Concomitant]
     Active Substance: METFORMIN HYDROCHLORIDE
  13. PIOGLITAZONE. [Concomitant]
     Active Substance: PIOGLITAZONE
  14. NEUROTROPIN [Concomitant]
     Active Substance: NEUROTROPIN
  15. AMINOVACT [Concomitant]
     Active Substance: ISOLEUCINE\LEUCINE\VALINE
  16. FERROUS CITRATE NA [Concomitant]
     Active Substance: SODIUM FERROUS CITRATE
  17. CALONAL [Concomitant]
     Active Substance: ACETAMINOPHEN
  18. LOXOPROFEN NA [Concomitant]
     Active Substance: LOXOPROFEN SODIUM
     Indication: PAIN
  19. AMLODIPINE [Concomitant]
     Active Substance: AMLODIPINE BESYLATE

REACTIONS (1)
  - Pharyngeal haemorrhage [Recovering/Resolving]

NARRATIVE: CASE EVENT DATE: 20200616
